FAERS Safety Report 22679204 (Version 5)
Quarter: 2024Q3

REPORT INFORMATION
  Report Type: Report from Study
  Country: JP (occurrence: JP)
  Receive Date: 20230706
  Receipt Date: 20240718
  Transmission Date: 20241017
  Serious: Yes (Hospitalization)
  Sender: ABBVIE
  Company Number: JP-ABBVIE-19S-087-2699772-00

PATIENT
  Age: 62 Year
  Sex: Male
  Weight: 61 kg

DRUGS (7)
  1. CARBIDOPA\LEVODOPA [Suspect]
     Active Substance: CARBIDOPA\LEVODOPA
     Indication: Parkinson^s disease
     Dosage: MD: 5.3 ML?CD: 3.0 ML/HR ? 14 HRS?ED: 2.0 ML/UNIT ? 2 TIMES
     Route: 050
     Dates: start: 20190129, end: 20190204
  2. CARBIDOPA\LEVODOPA [Suspect]
     Active Substance: CARBIDOPA\LEVODOPA
     Dosage: MD: 5.3 ML?CD: 3.5 ML/HR ? 16 HRS?ED: 2.0 ML/UNIT ? 2 TIMES
     Route: 050
     Dates: start: 20190205, end: 20190207
  3. CARBIDOPA\LEVODOPA [Suspect]
     Active Substance: CARBIDOPA\LEVODOPA
     Dosage: MD: 5.3 ML?CD: 4.0 ML/HR ? 17 HRS?ED: 2.0 ML/UNIT ? 2 TIMES
     Route: 050
     Dates: start: 20190208, end: 20191223
  4. CARBIDOPA\LEVODOPA [Suspect]
     Active Substance: CARBIDOPA\LEVODOPA
     Dosage: MD: 5.3 ML?CD: 3.4 ML/HR A- 16 HRS?ED: 2.0 ML/UNIT A- 2
     Route: 050
     Dates: start: 20191223
  5. ROTIGOTINE [Concomitant]
     Active Substance: ROTIGOTINE
     Indication: Parkinson^s disease
     Dosage: 4.5 MILLIGRAM
     Route: 062
     Dates: end: 20190422
  6. ROTIGOTINE [Concomitant]
     Active Substance: ROTIGOTINE
     Indication: Parkinson^s disease
     Dosage: 9 MILLIGRAM
     Route: 062
     Dates: start: 20190422
  7. CARBIDOPA\ENTACAPONE\LEVODOPA [Concomitant]
     Active Substance: CARBIDOPA\ENTACAPONE\LEVODOPA
     Indication: Parkinson^s disease
     Route: 048
     Dates: start: 20190206

REACTIONS (30)
  - Hospitalisation [Unknown]
  - Muscle contracture [Recovered/Resolved]
  - Myelitis [Recovered/Resolved]
  - Inappropriate schedule of product administration [Unknown]
  - Medical device site scab [Recovered/Resolved]
  - Pollakiuria [Recovered/Resolved]
  - Product storage error [Unknown]
  - Incorrect route of product administration [Unknown]
  - Wrong technique in device usage process [Unknown]
  - Musculoskeletal stiffness [Unknown]
  - Device use error [Unknown]
  - Dyspnoea [Recovered/Resolved]
  - Malaise [Recovered/Resolved]
  - Stoma site paraesthesia [Recovered/Resolved]
  - Drug ineffective [Unknown]
  - Stoma site erythema [Recovered/Resolved]
  - Stoma site pain [Recovered/Resolved]
  - Stoma site hypergranulation [Unknown]
  - Dyskinesia [Recovering/Resolving]
  - Stoma site haemorrhage [Unknown]
  - Stoma site pruritus [Unknown]
  - Therapeutic product effect incomplete [Unknown]
  - Pain [Recovered/Resolved]
  - Feeling abnormal [Unknown]
  - Device physical property issue [Unknown]
  - Muscle contracture [Recovering/Resolving]
  - Musculoskeletal stiffness [Recovering/Resolving]
  - Malaise [Unknown]
  - Stoma site pain [Unknown]
  - Stoma site haemorrhage [Unknown]

NARRATIVE: CASE EVENT DATE: 20190101
